FAERS Safety Report 12694799 (Version 1)
Quarter: 2016Q3

REPORT INFORMATION
  Report Type: Spontaneous
  Country: VN (occurrence: VN)
  Receive Date: 20160829
  Receipt Date: 20160829
  Transmission Date: 20161109
  Serious: Yes (Other)
  Sender: FDA-Public Use
  Company Number: VN-B. BRAUN MEDICAL INC.-1056833

PATIENT
  Age: 69 Year
  Sex: Male

DRUGS (1)
  1. SODIUM CHLORIDE. [Suspect]
     Active Substance: SODIUM CHLORIDE

REACTIONS (3)
  - Shock [None]
  - Pyrexia [None]
  - Tremor [None]
